FAERS Safety Report 11115069 (Version 1)
Quarter: 2015Q2

REPORT INFORMATION
  Report Type: Spontaneous
  Country: US (occurrence: None)
  Receive Date: 20150514
  Receipt Date: 20150514
  Transmission Date: 20150821
  Serious: Yes (Other)
  Sender: FDA-Public Use
  Company Number: None

PATIENT
  Age: 62 Year
  Sex: Female
  Weight: 51.26 kg

DRUGS (16)
  1. PILOCARPINE [Concomitant]
     Active Substance: PILOCARPINE
  2. MULTI-VITAMIN [Concomitant]
     Active Substance: .ALPHA.-TOCOPHEROL ACETATE, DL-\ASCORBIC ACID\CYANOCOBALAMIN\FLUORIDE ION\FOLIC ACID\NIACIN\PYRIDOXINE\RIBOFLAVIN\THIAMINE\VITAMIN A\VITAMIN D
  3. RECLAST [Suspect]
     Active Substance: ZOLEDRONIC ACID
     Indication: BONE DISORDER
     Dosage: ONCE YEARLY ?INTO A VEIN
     Dates: start: 20150413, end: 20150413
  4. ESTROGEN [Concomitant]
     Active Substance: ESTRONE\SUS SCROFA OVARY
  5. CALCIUM [Concomitant]
     Active Substance: CALCIUM
  6. BACTRIM [Concomitant]
     Active Substance: SULFAMETHOXAZOLE\TRIMETHOPRIM
  7. WELLBUTRIN [Concomitant]
     Active Substance: BUPROPION HYDROCHLORIDE
  8. LORAZEPAM. [Concomitant]
     Active Substance: LORAZEPAM
  9. FLAXSEED [Concomitant]
     Active Substance: FLAX SEED
  10. POTASSIUM [Concomitant]
     Active Substance: POTASSIUM
  11. ACYCLOVIR. [Concomitant]
     Active Substance: ACYCLOVIR
  12. PREDNISONE. [Concomitant]
     Active Substance: PREDNISONE
  13. ZOLPIDEM [Concomitant]
     Active Substance: ZOLPIDEM\ZOLPIDEM TARTRATE
  14. OMEPRAZOLE. [Concomitant]
     Active Substance: OMEPRAZOLE
  15. MAGNESIUM [Concomitant]
     Active Substance: MAGNESIUM
  16. ACIDOPHILLUS [Concomitant]

REACTIONS (6)
  - Chills [None]
  - Bone pain [None]
  - Chest discomfort [None]
  - Alopecia [None]
  - Malaise [None]
  - Asthenia [None]

NARRATIVE: CASE EVENT DATE: 20150413
